FAERS Safety Report 17246548 (Version 2)
Quarter: 2020Q1

REPORT INFORMATION
  Report Type: Spontaneous
  Country: US (occurrence: US)
  Receive Date: 20200108
  Receipt Date: 20200115
  Transmission Date: 20200409
  Serious: Yes (Life-Threatening, Other)
  Sender: FDA-Public Use
  Company Number: US-PFIZER INC-2020000676

PATIENT
  Age: 68 Year
  Sex: Female

DRUGS (1)
  1. HEPARIN SODIUM. [Suspect]
     Active Substance: HEPARIN SODIUM
     Indication: ACUTE MYOCARDIAL INFARCTION
     Dosage: UNK (INFUSED)

REACTIONS (4)
  - Heparin-induced thrombocytopenia [Recovered/Resolved]
  - Acute myocardial infarction [Unknown]
  - Deep vein thrombosis [Recovered/Resolved]
  - Thrombophlebitis superficial [Recovered/Resolved]
